FAERS Safety Report 8585113-5 (Version None)
Quarter: 2012Q3

REPORT INFORMATION
  Report Type: 
  Country: None (occurrence: None)
  Receive Date: 20120810
  Receipt Date: 20120731
  Transmission Date: 20120928
  Serious: Yes (Hospitalization, Other)
  Sender: FDA-Public Use
  Company Number: FR-GENZYME-THYM-1003353

PATIENT
  Sex: Female

DRUGS (11)
  1. THYMOGLOBULIN [Suspect]
     Indication: IMMUNOSUPPRESSION
     Dosage: 196 MG, QD
     Route: 042
     Dates: start: 20100811, end: 20100815
  2. CYCLOSPORINE [Suspect]
     Indication: IMMUNOSUPPRESSANT DRUG THERAPY
     Dosage: 200 MG, BID
     Route: 048
     Dates: start: 20100811
  3. ZOVIRAX [Concomitant]
     Indication: ORAL HERPES
     Dosage: 500 MG, TID
     Route: 065
     Dates: start: 20100731, end: 20100901
  4. TAZOBACTAM [Concomitant]
     Indication: PYREXIA
     Dosage: 4 G, TID
     Route: 042
     Dates: start: 20100720, end: 20100903
  5. THYMOGLOBULIN [Suspect]
     Dosage: 112 MG, QD
     Route: 065
     Dates: start: 20101011, end: 20101013
  6. PREDNISONE TAB [Suspect]
     Indication: IMMUNOSUPPRESSANT DRUG THERAPY
     Dosage: 56 MG, UNK
     Route: 065
     Dates: start: 20100816
  7. SOLU-MEDROL [Suspect]
     Indication: IMMUNOSUPPRESSANT DRUG THERAPY
     Dosage: 11 MG, QD
     Route: 065
     Dates: start: 20100811, end: 20100815
  8. SOLU-MEDROL [Suspect]
     Dosage: 100 MG, QID
     Route: 065
     Dates: start: 20101011, end: 20101015
  9. CYCLOPHOSPHAMIDE [Suspect]
     Indication: BONE MARROW CONDITIONING REGIMEN
     Dosage: 2800 MG, QD
     Route: 065
     Dates: start: 20101010, end: 20101013
  10. VANCOMYCIN [Concomitant]
     Indication: PROPHYLAXIS
     Dosage: 1 G, BID
     Route: 065
     Dates: start: 20100902, end: 20100913
  11. TAZOBACTAM [Concomitant]
     Indication: ANTI-INFECTIVE THERAPY
     Dosage: 12 G, QID
     Route: 065
     Dates: start: 20100919

REACTIONS (10)
  - APLASIA [None]
  - PYREXIA [None]
  - CHILLS [None]
  - ACUTE PULMONARY OEDEMA [None]
  - WEIGHT INCREASED [None]
  - SKIN TOXICITY [None]
  - RASH PAPULAR [None]
  - OXYGEN SATURATION DECREASED [None]
  - CREPITATIONS [None]
  - HYPERSENSITIVITY [None]
